FAERS Safety Report 8360837-3 (Version None)
Quarter: 2012Q2

REPORT INFORMATION
  Report Type: 
  Country: None (occurrence: None)
  Receive Date: 20120515
  Receipt Date: 20120507
  Transmission Date: 20120825
  Serious: Yes (Death, Other)
  Sender: FDA-Public Use
  Company Number: US-INCYTE CORPORATION-2012IN000757

PATIENT
  Sex: Female

DRUGS (1)
  1. JAKAFI [Suspect]

REACTIONS (3)
  - DYSPNOEA [None]
  - DEATH [None]
  - BLOOD COUNT ABNORMAL [None]
